FAERS Safety Report 4881803-6 (Version None)
Quarter: 2006Q1

REPORT INFORMATION
  Report Type: 
  Country: None (occurrence: None)
  Receive Date: 20060112
  Receipt Date: 20060112
  Transmission Date: 20060701
  Serious: Yes (Life-Threatening, Hospitalization)
  Sender: FDA-Public Use
  Company Number: None

PATIENT
  Age: 79 Year
  Sex: Male
  Weight: 87.6 kg

DRUGS (1)
  1. WARFARIN [Suspect]
     Indication: ATRIAL FIBRILLATION
     Dosage: 5.0MG QD PO
     Route: 048

REACTIONS (13)
  - BILIARY DILATATION [None]
  - BIOPSY SITE UNSPECIFIED ABNORMAL [None]
  - BLOOD ACID PHOSPHATASE ABNORMAL [None]
  - BLOOD BILIRUBIN ABNORMAL [None]
  - COAGULOPATHY [None]
  - CULTURE STOOL POSITIVE [None]
  - DIARRHOEA [None]
  - INTERNATIONAL NORMALISED RATIO INCREASED [None]
  - JAUNDICE [None]
  - LEUKOCYTOSIS [None]
  - LIVER FUNCTION TEST ABNORMAL [None]
  - NEOPLASM MALIGNANT [None]
  - STAPHYLOCOCCAL INFECTION [None]
